FAERS Safety Report 21065543 (Version 3)
Quarter: 2022Q3

REPORT INFORMATION
  Report Type: Report from Study
  Country: TH (occurrence: None)
  Receive Date: 20220711
  Receipt Date: 20220718
  Transmission Date: 20221027
  Serious: Yes (Death)
  Sender: FDA-Public Use
  Company Number: 2022A249940

PATIENT
  Age: 26703 Day
  Sex: Female

DRUGS (2)
  1. TAGRISSO [Suspect]
     Active Substance: OSIMERTINIB
     Indication: Non-small cell lung cancer metastatic
     Route: 048
     Dates: start: 20210329, end: 2022
  2. SENNA [Concomitant]
     Active Substance: SENNA LEAF\SENNOSIDES\SENNOSIDES A AND B
     Indication: Constipation
     Dosage: AS NEEDED
     Route: 065

REACTIONS (4)
  - Vomiting [Fatal]
  - Feeding disorder [Fatal]
  - Weight decreased [Fatal]
  - Drug resistance [Fatal]

NARRATIVE: CASE EVENT DATE: 20220101
